FAERS Safety Report 5193790-4 (Version None)
Quarter: 2006Q4

REPORT INFORMATION
  Report Type: 
  Country: None (occurrence: None)
  Receive Date: 20061228
  Receipt Date: 20061201
  Transmission Date: 20070319
  Serious: Yes (Other)
  Sender: FDA-Public Use
  Company Number: FR-ELI_LILLY_AND_COMPANY-FR200612004213

PATIENT
  Age: 66 Year
  Sex: Female

DRUGS (8)
  1. FORTEO [Suspect]
     Indication: OSTEOPOROSIS
     Dosage: 20 UG, DAILY (1/D)
     Route: 058
     Dates: start: 20050930
  2. HUMALOG [Concomitant]
     Indication: DIABETES MELLITUS INSULIN-DEPENDENT
     Dosage: 42 IU, EACH MORNING
     Route: 058
     Dates: start: 20050110
  3. HUMALOG MIX 50/50 [Concomitant]
     Indication: DIABETES MELLITUS INSULIN-DEPENDENT
     Dosage: 50 IU, DAILY (1/D)
     Route: 058
     Dates: start: 20050110
  4. HUMALOG MIX 75/25 [Concomitant]
     Indication: DIABETES MELLITUS INSULIN-DEPENDENT
     Dosage: 40 IU, EACH EVENING
     Route: 058
     Dates: start: 20051121
  5. SKENAN [Concomitant]
     Indication: PAIN
     Dosage: 40 MG, EACH MORNING
     Dates: start: 20050106
  6. SKENAN [Concomitant]
     Dosage: 10 MG, DAILY (1/D)
  7. SKENAN [Concomitant]
     Dosage: 40 MG, EACH EVENING
  8. ACTISKENAN [Concomitant]
     Indication: PAIN
     Dosage: UNK, AS NEEDED
     Dates: start: 20050106

REACTIONS (4)
  - BACK PAIN [None]
  - MUSCULOSKELETAL PAIN [None]
  - PAIN IN EXTREMITY [None]
  - WEIGHT INCREASED [None]
